FAERS Safety Report 4779177-4 (Version None)
Quarter: 2005Q3

REPORT INFORMATION
  Report Type: 
  Country: None (occurrence: None)
  Receive Date: 20050923
  Receipt Date: 20050822
  Transmission Date: 20060218
  Serious: Yes (Other)
  Sender: FDA-Public Use
  Company Number: ENTC2005-0249

PATIENT
  Sex: Female

DRUGS (8)
  1. STALEVO 100 [Suspect]
     Dates: start: 20050813
  2. SINEMET CR [Concomitant]
  3. TIAZAC [Concomitant]
  4. MONOPRIL [Concomitant]
  5. FOSAMAX [Concomitant]
  6. ZOCOR [Concomitant]
  7. FERREX [Concomitant]
  8. ZOLOFT [Concomitant]

REACTIONS (3)
  - BLOOD PRESSURE INCREASED [None]
  - DEVICE MALFUNCTION [None]
  - HEART RATE DECREASED [None]
